FAERS Safety Report 5425878-4 (Version None)
Quarter: 2007Q3

REPORT INFORMATION
  Report Type: 
  Country: None (occurrence: None)
  Receive Date: 20070827
  Receipt Date: 20070817
  Transmission Date: 20080115
  Serious: Yes (Death)
  Sender: FDA-Public Use
  Company Number: GB-JNJFOC-20070803619

PATIENT
  Age: 8 Decade
  Sex: Female

DRUGS (3)
  1. DURAGESIC-100 [Suspect]
     Dosage: 3 X 50UG/HR
  2. DURAGESIC-100 [Suspect]
     Dosage: 2 X 50UG/HR
  3. DURAGESIC-100 [Suspect]
     Indication: PAIN

REACTIONS (2)
  - INAPPROPRIATE SCHEDULE OF DRUG ADMINISTRATION [None]
  - OVERDOSE [None]
